FAERS Safety Report 24926204 (Version 1)
Quarter: 2025Q1

REPORT INFORMATION
  Report Type: Spontaneous
  Country: FR (occurrence: FR)
  Receive Date: 20250205
  Receipt Date: 20250205
  Transmission Date: 20250409
  Serious: Yes (Other)
  Sender: BIOLOGICAL E. LIMITED
  Company Number: FR-BELUSA-2025BELLIT0008

PATIENT

DRUGS (1)
  1. ENOXAPARIN SODIUM [Suspect]
     Active Substance: ENOXAPARIN SODIUM
     Indication: Sneddon^s syndrome
     Route: 065

REACTIONS (1)
  - Bullous haemorrhagic dermatosis [Recovered/Resolved]
